FAERS Safety Report 5212790-9 (Version None)
Quarter: 2007Q1

REPORT INFORMATION
  Report Type: 
  Country: None (occurrence: None)
  Receive Date: 20070118
  Receipt Date: 20070118
  Transmission Date: 20070707
  Serious: No
  Sender: FDA-Public Use
  Company Number: None

PATIENT
  Sex: Female
  Weight: 68.0396 kg

DRUGS (2)
  1. CYMBALTA [Suspect]
     Indication: DEPRESSION
     Dosage: 1 QD PO
     Route: 048
  2. CYMBALTA [Suspect]
     Indication: MIGRAINE WITH AURA
     Dosage: 1 QD PO
     Route: 048

REACTIONS (14)
  - BLINDNESS TRANSIENT [None]
  - DEAFNESS TRANSITORY [None]
  - DIARRHOEA [None]
  - DISORIENTATION [None]
  - FALL [None]
  - FEAR [None]
  - FEELING ABNORMAL [None]
  - FEELING COLD [None]
  - HEADACHE [None]
  - HYPERHIDROSIS [None]
  - NAUSEA [None]
  - RETCHING [None]
  - TREMOR [None]
  - VOMITING [None]
